FAERS Safety Report 19451125 (Version 1)
Quarter: 2021Q2

REPORT INFORMATION
  Report Type: Spontaneous
  Country: CA (occurrence: CA)
  Receive Date: 20210623
  Receipt Date: 20210623
  Transmission Date: 20210717
  Serious: Yes (Hospitalization, Other)
  Sender: FDA-Public Use
  Company Number: CA-JNJFOC-20210638669

PATIENT
  Age: 45 Year
  Sex: Female
  Weight: 69 kg

DRUGS (12)
  1. CODEINE [Concomitant]
     Active Substance: CODEINE
     Route: 065
  2. IMODIUM [Concomitant]
     Active Substance: LOPERAMIDE HYDROCHLORIDE
  3. METHOTREXATE. [Concomitant]
     Active Substance: METHOTREXATE
     Dosage: 1 DOSAGE FORMS
  4. INFLIXIMAB, RECOMBINANT [Suspect]
     Active Substance: INFLIXIMAB
     Indication: CROHN^S DISEASE
     Route: 042
  5. DESIPRAMINE [Concomitant]
     Active Substance: DESIPRAMINE
  6. URSODIOL. [Concomitant]
     Active Substance: URSODIOL
  7. CHOLESTYRAMINE. [Concomitant]
     Active Substance: CHOLESTYRAMINE
  8. MAGNESIUM [Concomitant]
     Active Substance: MAGNESIUM
  9. PANTOLOC [PANTOPRAZOLE] [Concomitant]
     Active Substance: PANTOPRAZOLE SODIUM
  10. POTASSIUM [Concomitant]
     Active Substance: POTASSIUM
  11. CODEINE [Concomitant]
     Active Substance: CODEINE
     Route: 065
  12. METHOTREXATE. [Concomitant]
     Active Substance: METHOTREXATE
     Route: 065

REACTIONS (3)
  - Nephrolithiasis [Unknown]
  - Condition aggravated [Unknown]
  - Off label use [Unknown]
